FAERS Safety Report 8115425-0 (Version None)
Quarter: 2012Q1

REPORT INFORMATION
  Report Type: 
  Country: None (occurrence: None)
  Receive Date: 20120206
  Receipt Date: 20120124
  Transmission Date: 20120608
  Serious: Yes (Other)
  Sender: FDA-Public Use
  Company Number: US-ELI_LILLY_AND_COMPANY-US201201007309

PATIENT
  Sex: Female

DRUGS (1)
  1. CYMBALTA [Suspect]
     Dosage: UNK
     Dates: end: 20111101

REACTIONS (8)
  - SKIN EXFOLIATION [None]
  - OROPHARYNGEAL BLISTERING [None]
  - BLISTER [None]
  - FEELING ABNORMAL [None]
  - EYE PRURITUS [None]
  - INFLUENZA LIKE ILLNESS [None]
  - EYELID DISORDER [None]
  - MUSCULOSKELETAL STIFFNESS [None]
